FAERS Safety Report 15819501 (Version 2)
Quarter: 2019Q1

REPORT INFORMATION
  Report Type: Spontaneous
  Country: GB (occurrence: GB)
  Receive Date: 20190114
  Receipt Date: 20190117
  Transmission Date: 20190417
  Serious: Yes (Death, Other)
  Sender: FDA-Public Use
  Company Number: GB-TEVA-2019-GB-998371

PATIENT
  Age: 18 Year
  Sex: Male

DRUGS (3)
  1. CODEINE [Suspect]
     Active Substance: CODEINE
     Indication: PRODUCT USED FOR UNKNOWN INDICATION
     Dosage: UNK
     Dates: start: 20180712, end: 201807
  2. XANAX [Suspect]
     Active Substance: ALPRAZOLAM
     Indication: PRODUCT USED FOR UNKNOWN INDICATION
     Dosage: UNK
     Route: 048
     Dates: start: 20180712, end: 201807
  3. TRAMADOL HYDROCHLORIDE. [Interacting]
     Active Substance: TRAMADOL HYDROCHLORIDE
     Indication: PRODUCT USED FOR UNKNOWN INDICATION
     Dosage: UNK
     Dates: start: 20180712

REACTIONS (8)
  - Cardiac arrest [Fatal]
  - Drug interaction [Not Recovered/Not Resolved]
  - Toxicity to various agents [Fatal]
  - Intentional product misuse [Fatal]
  - Prescription drug used without a prescription [Unknown]
  - Snoring [Unknown]
  - Respiratory depression [Fatal]
  - Somnolence [Unknown]

NARRATIVE: CASE EVENT DATE: 201807
